FAERS Safety Report 19276400 (Version 1)
Quarter: 2021Q2

REPORT INFORMATION
  Report Type: Spontaneous
  Country: CN (occurrence: CN)
  Receive Date: 20210520
  Receipt Date: 20210520
  Transmission Date: 20210717
  Serious: Yes (Other)
  Sender: FDA-Public Use
  Company Number: CN-ROCHE-2827114

PATIENT
  Age: 38 Year
  Sex: Female
  Weight: 67.5 kg

DRUGS (5)
  1. SODIUM CHLORIDE IV [Concomitant]
     Active Substance: SODIUM CHLORIDE
     Dosage: INTRAVENOUS DRIP OF 0.9%  INJECTION 200ML
     Route: 042
  2. HERCEPTIN [Suspect]
     Active Substance: TRASTUZUMAB
     Indication: INVASIVE BREAST CARCINOMA
     Route: 041
     Dates: start: 20210319
  3. PALONOSETRON HYDROCHLORIDE. [Concomitant]
     Active Substance: PALONOSETRON HYDROCHLORIDE
     Dosage: PREVENT VOMITING
     Dates: start: 20210319
  4. PERJETA [Suspect]
     Active Substance: PERTUZUMAB
     Indication: INVASIVE BREAST CARCINOMA
     Route: 041
     Dates: start: 20210321
  5. DOCETAXEL. [Suspect]
     Active Substance: DOCETAXEL
     Indication: INVASIVE BREAST CARCINOMA
     Route: 041
     Dates: start: 20210319

REACTIONS (4)
  - Productive cough [Unknown]
  - Myelosuppression [Recovered/Resolved]
  - Pyrexia [Unknown]
  - Cough [Unknown]

NARRATIVE: CASE EVENT DATE: 20210326
